FAERS Safety Report 4754422-X (Version None)
Quarter: 2005Q3

REPORT INFORMATION
  Report Type: 
  Country: None (occurrence: None)
  Receive Date: 20050829
  Receipt Date: 20050725
  Transmission Date: 20060218
  Serious: Yes (Death)
  Sender: FDA-Public Use
  Company Number: US-BOEHRINGER INGELHEIM PHARMACEUTICALS, INC.-2005-BP-12624BP

PATIENT
  Sex: Male
  Weight: 75.8 kg

DRUGS (24)
  1. TIPRANAVIR / RITONAVIR CAPSULES [Suspect]
     Indication: HIV INFECTION
     Dosage: TPV/R 1000 MG/400 MG
     Route: 048
     Dates: start: 20031007, end: 20050501
  2. TENOFOVIR [Concomitant]
     Indication: HIV INFECTION
     Route: 048
     Dates: start: 20030522, end: 20050101
  3. LAMIVUDINE [Concomitant]
     Indication: HIV INFECTION
     Route: 048
     Dates: start: 20030522, end: 20050101
  4. GLUCOTROL [Concomitant]
     Indication: DIABETES MELLITUS
     Route: 048
     Dates: start: 20030310
  5. ATENOLOL [Concomitant]
     Indication: HYPERTENSION
     Route: 048
     Dates: start: 19980408
  6. RESTORIL [Concomitant]
     Indication: SLEEP DISORDER
     Route: 048
     Dates: start: 20000807
  7. LIPITOR [Concomitant]
     Indication: HYPERCHOLESTEROLAEMIA
     Route: 048
     Dates: start: 19980722
  8. DIGOXIN [Concomitant]
     Indication: CORONARY ARTERY DISEASE
     Route: 048
     Dates: start: 20020912
  9. VITAMIN B COMPLEX CAP [Concomitant]
     Indication: MEDICAL DIET
     Dosage: 1 TAB
     Route: 048
     Dates: start: 20011005
  10. DIFLUCAN [Concomitant]
     Indication: PROPHYLAXIS
     Route: 048
     Dates: start: 20040721
  11. XANAX [Concomitant]
     Indication: DEPRESSION
     Route: 048
     Dates: start: 19990826
  12. LASIX [Concomitant]
     Indication: DIURETIC THERAPY
     Route: 048
     Dates: start: 20030211
  13. REGLAN [Concomitant]
     Indication: GASTROOESOPHAGEAL REFLUX DISEASE
     Route: 048
     Dates: start: 20030211
  14. PREVACID [Concomitant]
     Indication: GASTROOESOPHAGEAL REFLUX DISEASE
     Route: 048
     Dates: start: 20030912
  15. ENALAPRIL [Concomitant]
     Indication: CORONARY ARTERY DISEASE
     Route: 048
     Dates: start: 20020912
  16. LOPID [Concomitant]
     Indication: HYPERTRIGLYCERIDAEMIA
     Route: 048
     Dates: start: 19980408
  17. ZOLOFT [Concomitant]
     Indication: DEPRESSION
     Route: 048
     Dates: start: 20030910
  18. ULTRAM [Concomitant]
     Indication: PAIN
     Route: 048
     Dates: start: 20030911
  19. COMPAZINE [Concomitant]
     Indication: VOMITING
     Route: 048
     Dates: start: 20040317
  20. COMPAZINE [Concomitant]
     Indication: NAUSEA
  21. MS CONTIN [Concomitant]
     Indication: NEUROPATHY
     Route: 048
     Dates: start: 20040216
  22. DESYREL [Concomitant]
     Indication: DEPRESSION
     Route: 048
     Dates: start: 20040217
  23. DAPSONE [Concomitant]
     Indication: INFECTION PROPHYLAXIS
     Route: 048
     Dates: start: 20030911
  24. ASPIRIN JR [Concomitant]
     Indication: CORONARY ARTERY DISEASE
     Route: 048
     Dates: start: 20040106

REACTIONS (7)
  - ACUTE PRERENAL FAILURE [None]
  - CORONARY ARTERY SURGERY [None]
  - DEATH [None]
  - HYPOTENSION [None]
  - LACTIC ACIDOSIS [None]
  - METABOLIC ACIDOSIS [None]
  - ORAL INTAKE REDUCED [None]
